FAERS Safety Report 5213330-0 (Version None)
Quarter: 2007Q1

REPORT INFORMATION
  Report Type: 
  Country: None (occurrence: None)
  Receive Date: 20070119
  Receipt Date: 20060327
  Transmission Date: 20070707
  Serious: No
  Sender: FDA-Public Use
  Company Number: US-GLAXOSMITHKLINE-A0599163A

PATIENT
  Age: 42 Year
  Sex: Female

DRUGS (10)
  1. ARIXTRA [Suspect]
     Indication: DEEP VEIN THROMBOSIS
     Dosage: 7.5MG PER DAY
     Route: 058
     Dates: start: 20060306
  2. HYDROCODONE [Concomitant]
  3. OXYCODONE HCL [Concomitant]
  4. PROTONIX [Concomitant]
  5. ALBUTEROL [Concomitant]
  6. UNKNOWN MEDICATION [Concomitant]
  7. LASIX [Concomitant]
  8. K-DUR 10 [Concomitant]
  9. FENTANYL TRANSDERMAL SYSTEM [Concomitant]
  10. KEFLEX [Concomitant]

REACTIONS (2)
  - INJECTION SITE PAIN [None]
  - PHARMACEUTICAL PRODUCT COMPLAINT [None]
